FAERS Safety Report 16440558 (Version 1)
Quarter: 2019Q2

REPORT INFORMATION
  Report Type: Spontaneous
  Country: JP (occurrence: JP)
  Receive Date: 20190617
  Receipt Date: 20190617
  Transmission Date: 20190711
  Serious: Yes (Death, Other)
  Sender: FDA-Public Use
  Company Number: JP-COLLEGIUM PHARMACEUTICAL, INC.-JP-2019COL000700

PATIENT

DRUGS (5)
  1. OXYCODONE [Suspect]
     Active Substance: OXYCODONE
     Indication: PAIN
     Dosage: UNK
  2. MORPHINE [Suspect]
     Active Substance: MORPHINE
     Indication: PAIN
     Dosage: UNK
  3. TAPENTADOL EXTENDED RELEASE [Suspect]
     Active Substance: TAPENTADOL
     Indication: PAIN
     Dosage: UNK
  4. METHADONE [Suspect]
     Active Substance: METHADONE HYDROCHLORIDE
     Indication: PAIN
     Dosage: UNK
  5. FENTANYL. [Suspect]
     Active Substance: FENTANYL
     Indication: PAIN
     Dosage: UNK

REACTIONS (20)
  - Respiratory failure [Fatal]
  - Neoplasm malignant [Fatal]
  - Gastric cancer [Fatal]
  - Interstitial lung disease [Fatal]
  - Epidermal necrosis [Fatal]
  - Respiratory depression [Fatal]
  - Ileus [Unknown]
  - Vomiting [Unknown]
  - Constipation [Unknown]
  - Colon cancer [Fatal]
  - Decreased appetite [Unknown]
  - Altered state of consciousness [Unknown]
  - Delirium [Unknown]
  - Nausea [Unknown]
  - Pancreatic carcinoma [Fatal]
  - Depressed level of consciousness [Unknown]
  - Lung neoplasm malignant [Fatal]
  - Sepsis [Fatal]
  - Pneumonia [Fatal]
  - Somnolence [Unknown]
